FAERS Safety Report 12675047 (Version 1)
Quarter: 2016Q3

REPORT INFORMATION
  Report Type: Other
  Country: US (occurrence: US)
  Receive Date: 20160822
  Receipt Date: 20160822
  Transmission Date: 20161109
  Serious: No
  Sender: FDA-Public Use
  Company Number: US-PSKUSFDA-2015-US-0183

PATIENT
  Sex: Male

DRUGS (1)
  1. SANCUSO [Suspect]
     Active Substance: GRANISETRON
     Indication: NAUSEA
     Dosage: UNKNOWN

REACTIONS (3)
  - Inappropriate schedule of drug administration [Unknown]
  - Product adhesion issue [Unknown]
  - No adverse event [Unknown]
